FAERS Safety Report 9928085 (Version 2)
Quarter: 2014Q2

REPORT INFORMATION
  Report Type: Spontaneous
  Country: CH (occurrence: None)
  Receive Date: 20140224
  Receipt Date: 20140422
  Transmission Date: 20141212
  Serious: Yes (Hospitalization)
  Sender: FDA-Public Use
  Company Number: 20140068

PATIENT
  Age: 33 Year
  Sex: Female

DRUGS (3)
  1. FERINJECT [Suspect]
     Indication: IRON DEFICIENCY ANAEMIA
     Dosage: 2 INFUSIONS
  2. CALCICHEW [Concomitant]
  3. VITAMIN B12 [Concomitant]

REACTIONS (7)
  - Hypophosphataemia [None]
  - Hyperparathyroidism [None]
  - Condition aggravated [None]
  - Fatigue [None]
  - Asthenia [None]
  - Muscular weakness [None]
  - Gastrointestinal disorder [None]
